FAERS Safety Report 9843052 (Version 1)
Quarter: 2014Q1

REPORT INFORMATION
  Report Type: Spontaneous
  Country: US (occurrence: US)
  Receive Date: 20140124
  Receipt Date: 20140124
  Transmission Date: 20141002
  Serious: Yes (Other)
  Sender: FDA-Public Use
  Company Number: US-PFIZER INC-2014016007

PATIENT
  Sex: Male

DRUGS (1)
  1. PREPARATION H COOLING GEL [Suspect]
     Dosage: UNK

REACTIONS (2)
  - Anal haemorrhage [Unknown]
  - Burning sensation [Unknown]
